FAERS Safety Report 7417267-8 (Version None)
Quarter: 2011Q2

REPORT INFORMATION
  Report Type: 
  Country: None (occurrence: None)
  Receive Date: 20110415
  Receipt Date: 20110408
  Transmission Date: 20111010
  Serious: Yes (Life-Threatening, Hospitalization, Other)
  Sender: FDA-Public Use
  Company Number: ZA-JNJFOC-20110404989

PATIENT
  Age: 17 Year
  Sex: Female

DRUGS (2)
  1. TRAMADOL HYDROCHLORIDE/ACETAMINOPHEN [Suspect]
     Indication: PRODUCT USED FOR UNKNOWN INDICATION
     Dosage: PRN
     Route: 065
  2. LEXAMIL [Interacting]
     Indication: PRODUCT USED FOR UNKNOWN INDICATION
     Route: 065

REACTIONS (9)
  - ABASIA [None]
  - LOSS OF CONSCIOUSNESS [None]
  - DIZZINESS [None]
  - CARDIAC ARREST [None]
  - VISUAL IMPAIRMENT [None]
  - GAIT SPASTIC [None]
  - PARALYSIS [None]
  - SYNCOPE [None]
  - DRUG INTERACTION [None]
